FAERS Safety Report 18249349 (Version 1)
Quarter: 2020Q3

REPORT INFORMATION
  Report Type: Spontaneous
  Country: ES (occurrence: ES)
  Receive Date: 20200909
  Receipt Date: 20200909
  Transmission Date: 20201103
  Serious: Yes (Life-Threatening, Hospitalization)
  Sender: FDA-Public Use
  Company Number: ES-TEVA-2020-ES-1824249

PATIENT
  Age: 40 Year
  Sex: Male

DRUGS (1)
  1. AMOXICILINA / ACIDO CLAVULANICO 875/125 MG COMPRIMIDOS [Suspect]
     Active Substance: AMOXICILLIN\CLAVULANIC ACID
     Indication: SELF-MEDICATION
     Route: 048
     Dates: start: 20190216, end: 20190219

REACTIONS (1)
  - Agranulocytosis [Recovered/Resolved]

NARRATIVE: CASE EVENT DATE: 20190219
